FAERS Safety Report 4730121-5 (Version None)
Quarter: 2005Q3

REPORT INFORMATION
  Report Type: 
  Country: None (occurrence: None)
  Receive Date: 20050728
  Receipt Date: 20050718
  Transmission Date: 20060218
  Serious: Yes (Hospitalization)
  Sender: FDA-Public Use
  Company Number: DEU-2005-0001336

PATIENT
  Age: 71 Year
  Sex: Male

DRUGS (9)
  1. PALLADONE [Suspect]
     Indication: CANCER PAIN
     Dosage: 4 MG, BID, ORAL; SEE IMAGE
     Route: 048
     Dates: start: 20050223, end: 20050226
  2. DEXAMETHASONE [Concomitant]
  3. LEXOTANIL                 (BROMAZEPAM) [Concomitant]
  4. ANTIBIOTICS [Concomitant]
  5. GABAPENTIN [Concomitant]
  6. MORPHINE SULFATE [Concomitant]
  7. INSIDON (OPIPRAMOL HYDROCHLORIDE) [Concomitant]
  8. MCP                           (METOCLOPRAMIDE HYDROCHLORIDE) [Concomitant]
  9. MOVICOL (SODIUM BICARBONATE, POTASSIUM CHLORIDE, SODIUM CHLORIDE, MACR [Concomitant]

REACTIONS (13)
  - ACUTE PSYCHOSIS [None]
  - ANXIETY DISORDER [None]
  - CONFUSIONAL STATE [None]
  - CONSTIPATION [None]
  - DELIRIUM [None]
  - DISORIENTATION [None]
  - DIVERTICULUM [None]
  - FATIGUE [None]
  - FUMBLING [None]
  - HALLUCINATION, VISUAL [None]
  - ILLUSION [None]
  - INFECTION [None]
  - RESTLESSNESS [None]
